FAERS Safety Report 5738827-6 (Version None)
Quarter: 2008Q2

REPORT INFORMATION
  Report Type: 
  Country: None (occurrence: None)
  Receive Date: 20080515
  Receipt Date: 20080429
  Transmission Date: 20081010
  Serious: No
  Sender: FDA-Public Use
  Company Number: A0718651A

PATIENT
  Age: 58 Year
  Sex: Female

DRUGS (5)
  1. VERAMYST [Suspect]
     Dosage: 1SPR AS REQUIRED
     Route: 045
     Dates: start: 20080215, end: 20080217
  2. ALLEGRA [Concomitant]
  3. CLARITIN [Concomitant]
  4. ZYRTEC [Concomitant]
  5. OXYGEN THERAPY [Concomitant]

REACTIONS (6)
  - INFLAMMATION [None]
  - NASAL DRYNESS [None]
  - PHARMACEUTICAL PRODUCT COMPLAINT [None]
  - RESPIRATORY DISORDER [None]
  - RHINORRHOEA [None]
  - SNEEZING [None]
